FAERS Safety Report 6124333-6 (Version None)
Quarter: 2009Q1

REPORT INFORMATION
  Report Type: 
  Country: None (occurrence: None)
  Receive Date: 20090318
  Receipt Date: 20090318
  Transmission Date: 20090719
  Serious: Yes (Other)
  Sender: FDA-Public Use
  Company Number: None

PATIENT
  Age: 23 Year
  Sex: Female
  Weight: 68.0396 kg

DRUGS (1)
  1. MIRENA [Suspect]
     Indication: CONTRACEPTION
     Dosage: TWO AND A HALF YRS INTRACERVICAL
     Route: 019
     Dates: start: 20070601, end: 20090217

REACTIONS (3)
  - COMPLICATION OF DEVICE REMOVAL [None]
  - ECONOMIC PROBLEM [None]
  - IUD MIGRATION [None]
